FAERS Safety Report 9746603 (Version 1)
Quarter: 2013Q4

REPORT INFORMATION
  Report Type: Report from Study
  Country: LB (occurrence: LB)
  Receive Date: 20131211
  Receipt Date: 20131211
  Transmission Date: 20140711
  Serious: Yes (Death, Hospitalization)
  Sender: FDA-Public Use
  Company Number: LB-SA-2013SA126325

PATIENT
  Age: 52 Year
  Sex: Female

DRUGS (6)
  1. LANTUS SOLOSTAR [Suspect]
     Indication: DIABETES MELLITUS
     Dosage: DOSE:20 UNIT(S)
     Route: 058
     Dates: start: 2013
  2. AMARYL [Suspect]
     Indication: DIABETES MELLITUS
     Route: 048
  3. METFORMIN [Concomitant]
     Indication: DIABETES MELLITUS
     Route: 048
  4. MONTELUKAST [Concomitant]
     Route: 048
  5. SERETIDE [Concomitant]
     Route: 048
  6. SOLOSTAR [Concomitant]
     Indication: DEVICE THERAPY
     Dates: start: 2013

REACTIONS (2)
  - Myocardial infarction [Fatal]
  - Hyperglycaemia [Unknown]
